FAERS Safety Report 24001819 (Version 1)
Quarter: 2024Q2

REPORT INFORMATION
  Report Type: Spontaneous
  Country: BR (occurrence: BR)
  Receive Date: 20240622
  Receipt Date: 20240622
  Transmission Date: 20240717
  Serious: Yes (Death, Life-Threatening)
  Sender: FDA-Public Use
  Company Number: BR-AMGEN-BRASP2024118922

PATIENT

DRUGS (2)
  1. RITUXIMAB [Suspect]
     Active Substance: RITUXIMAB
     Indication: Chronic lymphocytic leukaemia
     Dosage: UNK
     Route: 065
  2. IBRUTINIB [Concomitant]
     Active Substance: IBRUTINIB
     Indication: Chronic lymphocytic leukaemia
     Dosage: UNK

REACTIONS (4)
  - Tonsillitis [Fatal]
  - Fungal skin infection [Fatal]
  - Gastroenteritis [Fatal]
  - Herpes zoster [Fatal]
